FAERS Safety Report 7372355-X (Version None)
Quarter: 2011Q1

REPORT INFORMATION
  Report Type: 
  Country: None (occurrence: None)
  Receive Date: 20110324
  Receipt Date: 20110323
  Transmission Date: 20110831
  Serious: Yes (Hospitalization)
  Sender: FDA-Public Use
  Company Number: D0070096A

PATIENT
  Sex: Female
  Weight: 73 kg

DRUGS (4)
  1. XOLAIR [Concomitant]
     Indication: ASTHMA
     Dosage: 150MG EVERY TWO WEEKS
     Route: 058
     Dates: start: 20090901
  2. ATMADISC FORTE [Suspect]
     Indication: ASTHMA
     Dosage: 2PUFF TWICE PER DAY
     Route: 055
     Dates: start: 20090901, end: 20110131
  3. SINGULAIR [Concomitant]
     Indication: ASTHMA
     Route: 048
     Dates: start: 20090901
  4. BEROTEC [Concomitant]
     Indication: ASTHMA
     Route: 055
     Dates: start: 20070101

REACTIONS (4)
  - LARYNGITIS [None]
  - COUGH [None]
  - EPIGLOTTITIS [None]
  - DYSPHONIA [None]
